FAERS Safety Report 16082026 (Version 5)
Quarter: 2019Q3

REPORT INFORMATION
  Report Type: Spontaneous
  Country: US (occurrence: US)
  Receive Date: 20190317
  Receipt Date: 20190804
  Transmission Date: 20191004
  Serious: Yes (Hospitalization, Other)
  Sender: FDA-Public Use
  Company Number: US-BIOGEN-2019BI00710179

PATIENT
  Age: 65 Year
  Sex: Female

DRUGS (1)
  1. TYSABRI [Suspect]
     Active Substance: NATALIZUMAB
     Indication: MULTIPLE SCLEROSIS
     Dosage: INFUSED OVER 1 HOUR
     Route: 065
     Dates: start: 20180621, end: 20190225

REACTIONS (6)
  - Nuclear magnetic resonance imaging abnormal [Unknown]
  - Brain neoplasm [Unknown]
  - Multiple sclerosis relapse [Unknown]
  - Dysarthria [Recovered/Resolved]
  - Memory impairment [Unknown]
  - Metastases to central nervous system [Unknown]

NARRATIVE: CASE EVENT DATE: 20190204
